FAERS Safety Report 7983385-9 (Version None)
Quarter: 2011Q4

REPORT INFORMATION
  Report Type: 
  Country: None (occurrence: None)
  Receive Date: 20111215
  Receipt Date: 20111213
  Transmission Date: 20120403
  Serious: Yes (Other)
  Sender: FDA-Public Use
  Company Number: DE-VALEANT-2011VX003661

PATIENT
  Age: 61 Year
  Sex: Male

DRUGS (2)
  1. RAMICLAIR [Concomitant]
     Route: 065
  2. FLUOROURACIL [Suspect]
     Route: 061
     Dates: start: 20110105, end: 20110127

REACTIONS (1)
  - BONE ATROPHY [None]
